FAERS Safety Report 7746278-8 (Version None)
Quarter: 2011Q3

REPORT INFORMATION
  Report Type: 
  Country: None (occurrence: None)
  Receive Date: 20110912
  Receipt Date: 20110912
  Transmission Date: 20111222
  Serious: No
  Sender: FDA-Public Use
  Company Number: None

PATIENT
  Sex: Female

DRUGS (7)
  1. TRAMADOL HCL [Concomitant]
  2. ENBREL [Suspect]
     Indication: PSORIATIC ARTHROPATHY
     Dosage: 50 MG QW SQ
     Route: 058
     Dates: start: 20110808, end: 20110830
  3. CITALOPRAM HYDROBROMIDE [Concomitant]
  4. LORTAB [Concomitant]
  5. FOLIC ACID [Concomitant]
  6. METHOTREXATE [Concomitant]
  7. MELOXICAM [Concomitant]

REACTIONS (4)
  - VISION BLURRED [None]
  - HEADACHE [None]
  - SWELLING FACE [None]
  - OEDEMA PERIPHERAL [None]
